FAERS Safety Report 17362081 (Version 2)
Quarter: 2020Q3

REPORT INFORMATION
  Report Type: Report from Study
  Country: IT (occurrence: IT)
  Receive Date: 20200203
  Receipt Date: 20200930
  Transmission Date: 20201102
  Serious: Yes (Hospitalization)
  Sender: FDA-Public Use
  Company Number: IT-PFIZER INC-2020043509

PATIENT
  Age: 70 Year
  Sex: Male

DRUGS (2)
  1. OMEPRAZOLE. [Concomitant]
     Active Substance: OMEPRAZOLE
     Dosage: 20 MG, UNK
     Route: 048
  2. MEDROL [Suspect]
     Active Substance: METHYLPREDNISOLONE
     Indication: HEPATITIS TOXIC
     Dosage: 4 DF, 1X/DAY
     Route: 048
     Dates: start: 20191130, end: 20191228

REACTIONS (4)
  - Polyuria [Recovering/Resolving]
  - Sopor [Recovering/Resolving]
  - Polydipsia [Recovering/Resolving]
  - Blood glucose increased [Recovering/Resolving]

NARRATIVE: CASE EVENT DATE: 20191228
